FAERS Safety Report 23873991 (Version 1)
Quarter: 2024Q2

REPORT INFORMATION
  Report Type: Spontaneous
  Country: BA (occurrence: BA)
  Receive Date: 20240520
  Receipt Date: 20240520
  Transmission Date: 20240715
  Serious: Yes (Other)
  Sender: FDA-Public Use
  Company Number: BA-009507513-2404BIH007900

PATIENT
  Age: 71 Year
  Sex: Female

DRUGS (1)
  1. KEYTRUDA [Suspect]
     Active Substance: PEMBROLIZUMAB
     Indication: Non-small cell lung cancer
     Dosage: UNK
     Dates: start: 201812, end: 202012

REACTIONS (11)
  - Malignant neoplasm progression [Unknown]
  - Acute kidney injury [Unknown]
  - Chemotherapy [Unknown]
  - Blood urea increased [Unknown]
  - Blood creatinine increased [Unknown]
  - Contrast media deposition [Unknown]
  - Osteosclerosis [Unknown]
  - Hepatic cyst [Unknown]
  - Cholelithiasis [Unknown]
  - Fibroadenoma of breast [Unknown]
  - Lymphatic disorder [Unknown]
